FAERS Safety Report 5363579-1 (Version None)
Quarter: 2007Q2

REPORT INFORMATION
  Report Type: 
  Country: None (occurrence: None)
  Receive Date: 20070620
  Receipt Date: 20070607
  Transmission Date: 20071010
  Serious: Yes (Other)
  Sender: FDA-Public Use
  Company Number: A0654649A

PATIENT
  Age: 44 Year
  Sex: Male

DRUGS (11)
  1. LAMIVUDINE [Suspect]
     Indication: DRUG USE FOR UNKNOWN INDICATION
     Dosage: 150MG TWICE PER DAY
     Route: 048
  2. FUZEON [Suspect]
     Indication: DRUG USE FOR UNKNOWN INDICATION
     Dosage: 90MG TWICE PER DAY
     Route: 058
  3. NORVIR [Suspect]
     Indication: DRUG USE FOR UNKNOWN INDICATION
     Dosage: 100MG TWICE PER DAY
     Route: 048
  4. TELZIR [Suspect]
     Indication: DRUG USE FOR UNKNOWN INDICATION
     Dosage: 700MG TWICE PER DAY
     Route: 048
  5. VIDEX EC [Suspect]
     Indication: DRUG USE FOR UNKNOWN INDICATION
     Dosage: 400MG PER DAY
     Route: 048
  6. ATIVAN [Concomitant]
  7. DAPSONE [Concomitant]
  8. DARAPRIM [Concomitant]
  9. LEUCOVORIN CALCIUM [Concomitant]
  10. TEMAZEPAM [Concomitant]
  11. VFEND [Concomitant]

REACTIONS (5)
  - ERYTHEMA [None]
  - INJECTION SITE INFLAMMATION [None]
  - INJECTION SITE PAIN [None]
  - SKIN NODULE [None]
  - SKIN REACTION [None]
